FAERS Safety Report 7242588-1 (Version None)
Quarter: 2010Q4

REPORT INFORMATION
  Report Type: 
  Country: None (occurrence: None)
  Receive Date: 20101130
  Receipt Date: 20100514
  Transmission Date: 20110411
  Serious: Yes (Hospitalization)
  Sender: FDA-Public Use
  Company Number: US201005003835

PATIENT
  Sex: Male

DRUGS (1)
  1. BYETTA [Suspect]
     Indication: TYPE 1 DIABETES MELLITUS
     Dosage: 10 UG, SUBCUTANEOUS
     Route: 058

REACTIONS (4)
  - BLOOD GLUCOSE DECREASED [None]
  - INCORRECT DOSE ADMINISTERED [None]
  - OFF LABEL USE [None]
  - WRONG TECHNIQUE IN DRUG USAGE PROCESS [None]
